FAERS Safety Report 19299265 (Version 1)
Quarter: 2021Q2

REPORT INFORMATION
  Report Type: Report from Study
  Country: IL (occurrence: IL)
  Receive Date: 20210524
  Receipt Date: 20210524
  Transmission Date: 20210717
  Serious: Yes (Death)
  Sender: FDA-Public Use
  Company Number: NVSC2021IL116062

PATIENT
  Age: 66 Year
  Sex: Female

DRUGS (1)
  1. ERELZI [Suspect]
     Active Substance: ETANERCEPT-SZZS
     Indication: RHEUMATOID ARTHRITIS
     Dosage: 50 MG, QW (INJECTION)
     Route: 058
     Dates: start: 20210502

REACTIONS (1)
  - Death [Fatal]

NARRATIVE: CASE EVENT DATE: 20210518
